FAERS Safety Report 11129305 (Version 3)
Quarter: 2016Q2

REPORT INFORMATION
  Report Type: Spontaneous
  Country: US (occurrence: US)
  Receive Date: 20150521
  Receipt Date: 20160524
  Transmission Date: 20160815
  Serious: Yes (Other)
  Sender: FDA-Public Use
  Company Number: US-PFIZER INC-2015171366

PATIENT
  Age: 65 Year
  Sex: Female
  Weight: 55.78 kg

DRUGS (18)
  1. NICOTROL [Suspect]
     Active Substance: NICOTINE
     Dosage: 6 A DAY
     Route: 055
  2. NICOTROL [Suspect]
     Active Substance: NICOTINE
     Dosage: 2 CARTRIDGE DAY
     Route: 055
  3. MAGNESIUM [Concomitant]
     Active Substance: MAGNESIUM
     Indication: SHORT-BOWEL SYNDROME
     Dosage: UNK
  4. CREON [Concomitant]
     Active Substance: PANCRELIPASE AMYLASE\PANCRELIPASE LIPASE\PANCRELIPASE PROTEASE
     Indication: PANCREATIC ENZYMES
     Dosage: 6 DF, DAILY
     Dates: start: 2015
  5. CALCIUM [Concomitant]
     Active Substance: CALCIUM
     Indication: SHORT-BOWEL SYNDROME
     Dosage: UNK
  6. NICOTROL [Suspect]
     Active Substance: NICOTINE
     Dosage: ENTIRE PACKET OF 5 A DAY
     Route: 055
  7. NICOTROL [Suspect]
     Active Substance: NICOTINE
     Dosage: 1 TO 2 CARTRIDGES A DAY
     Route: 055
  8. NIFEDIPINE. [Concomitant]
     Active Substance: NIFEDIPINE
     Indication: BLOOD PRESSURE MEASUREMENT
     Dosage: 60 MG, DAILY
     Route: 048
  9. CREON [Concomitant]
     Active Substance: PANCRELIPASE AMYLASE\PANCRELIPASE LIPASE\PANCRELIPASE PROTEASE
     Dosage: 2 DF, DAILY
  10. CLONAZEPAM. [Concomitant]
     Active Substance: CLONAZEPAM
     Indication: SLEEP DISORDER
     Dosage: 0.5 MG, 1X/DAY
  11. GATTEX [Concomitant]
     Active Substance: TEDUGLUTIDE\WATER
     Indication: SHORT-BOWEL SYNDROME
     Dosage: 5 MG, DAILY
     Route: 058
     Dates: start: 201603
  12. NICOTROL [Suspect]
     Active Substance: NICOTINE
     Indication: SMOKING CESSATION THERAPY
     Dosage: ONE INHALATION, UP TO 10 TIMES A DAY
     Route: 055
     Dates: start: 201408
  13. TRAZODONE [Concomitant]
     Active Substance: TRAZODONE HYDROCHLORIDE
     Indication: SLEEP DISORDER
     Dosage: 50 MG, 1X/DAY (AT BEDTIME)
  14. NICOTROL [Suspect]
     Active Substance: NICOTINE
     Indication: SMOKING CESSATION THERAPY
     Dosage: AT 10 MG CARTRIDGE, 1 TO 2 CARTRIDGES A DAY, ALL DAY ALL THE TIME, EVERY 15-30 MINUTES
     Route: 045
     Dates: start: 201408
  15. VITAMIN D3 [Concomitant]
     Active Substance: CHOLECALCIFEROL
     Indication: SHORT-BOWEL SYNDROME
     Dosage: UNK
  16. NICOTROL [Suspect]
     Active Substance: NICOTINE
     Dosage: 3 A DAY
     Route: 055
  17. VITAMIN B12 [Concomitant]
     Active Substance: CYANOCOBALAMIN
     Indication: SHORT-BOWEL SYNDROME
     Dosage: UNK, MONTHLY
  18. SODIUM BICARBONATE. [Concomitant]
     Active Substance: SODIUM BICARBONATE
     Indication: SHORT-BOWEL SYNDROME
     Dosage: UNK

REACTIONS (5)
  - Weight increased [Unknown]
  - Drug dependence [Unknown]
  - Drug withdrawal syndrome [Unknown]
  - Drug prescribing error [Unknown]
  - Stress [Unknown]
